FAERS Safety Report 21407476 (Version 2)
Quarter: 2022Q4

REPORT INFORMATION
  Report Type: Spontaneous
  Country: US (occurrence: US)
  Receive Date: 20221004
  Receipt Date: 20221026
  Transmission Date: 20230112
  Serious: Yes (Other)
  Sender: FDA-Public Use
  Company Number: US-INTRA-CELLULAR THERAPIES, INC.-2022ICT01277

PATIENT
  Age: 55 Year
  Sex: Male
  Weight: 79.365 kg

DRUGS (5)
  1. CAPLYTA [Suspect]
     Active Substance: LUMATEPERONE
     Indication: Bipolar disorder
     Dosage: 42 MG, 1X/DAY IN THE MORNING
     Route: 048
     Dates: start: 20220830, end: 2022
  2. CAPLYTA [Suspect]
     Active Substance: LUMATEPERONE
     Dosage: 42 MG, 1X/DAY AT NIGHT
     Route: 048
     Dates: start: 20220830
  3. DISULFIRAM [Concomitant]
     Active Substance: DISULFIRAM
  4. LAMOTRIGINE [Concomitant]
     Active Substance: LAMOTRIGINE
  5. VITAMINS [Concomitant]
     Active Substance: VITAMINS

REACTIONS (10)
  - Suicidal ideation [Recovered/Resolved]
  - Depression [Recovering/Resolving]
  - Appetite disorder [Recovered/Resolved]
  - Performance status decreased [Recovered/Resolved]
  - Night sweats [Not Recovered/Not Resolved]
  - Euphoric mood [Recovered/Resolved]
  - Therapeutic product effect decreased [Recovered/Resolved]
  - Dizziness [Unknown]
  - Thinking abnormal [Recovered/Resolved]
  - Unevaluable event [Recovered/Resolved]

NARRATIVE: CASE EVENT DATE: 20220901
